FAERS Safety Report 16156578 (Version 1)
Quarter: 2019Q2

REPORT INFORMATION
  Report Type: Spontaneous
  Country: US (occurrence: US)
  Receive Date: 20190404
  Receipt Date: 20190404
  Transmission Date: 20190711
  Serious: No
  Sender: FDA-Public Use
  Company Number: US-AMGEN INC.-USASP2019048544

PATIENT

DRUGS (2)
  1. AIMOVIG [Suspect]
     Active Substance: ERENUMAB-AOOE
     Indication: MIGRAINE
     Dosage: UNK
     Route: 065
     Dates: start: 201812
  2. RELPAX [Concomitant]
     Active Substance: ELETRIPTAN HYDROBROMIDE
     Indication: MIGRAINE

REACTIONS (5)
  - Visual impairment [Unknown]
  - Fatigue [Unknown]
  - Injection site swelling [Unknown]
  - Injection site discolouration [Unknown]
  - Injection site erythema [Unknown]

NARRATIVE: CASE EVENT DATE: 2019
